FAERS Safety Report 4493365-6 (Version None)
Quarter: 2004Q4

REPORT INFORMATION
  Report Type: 
  Country: None (occurrence: None)
  Receive Date: 20041102
  Receipt Date: 20041025
  Transmission Date: 20050328
  Serious: No
  Sender: FDA-Public Use
  Company Number: 2003UW02195

PATIENT
  Age: 61 Year
  Sex: Female
  Weight: 72.5755 kg

DRUGS (4)
  1. NOLVADEX [Suspect]
     Indication: BREAST CANCER
     Dosage: 10 MG BID PO
     Route: 048
     Dates: start: 19870101
  2. VALIUM [Concomitant]
  3. PAMELOR [Concomitant]
  4. OXYCONTIN [Concomitant]

REACTIONS (10)
  - AMNESIA [None]
  - BRAIN NEOPLASM [None]
  - COGNITIVE DISORDER [None]
  - DIZZINESS [None]
  - FALL [None]
  - GAIT DISTURBANCE [None]
  - HEADACHE [None]
  - LUNG NEOPLASM MALIGNANT [None]
  - SUBDURAL HAEMATOMA [None]
  - WEIGHT INCREASED [None]
